FAERS Safety Report 4409597-9 (Version None)
Quarter: 2004Q3

REPORT INFORMATION
  Report Type: 
  Country: None (occurrence: None)
  Receive Date: 20040723
  Receipt Date: 20040218
  Transmission Date: 20050211
  Serious: Yes (Hospitalization)
  Sender: FDA-Public Use
  Company Number: US-JNJFOC-20040606545

PATIENT
  Age: 61 Year
  Sex: Male
  Weight: 133.5 kg

DRUGS (6)
  1. IBUPROFEN [Suspect]
     Indication: HEADACHE
  2. STARLIX [Suspect]
     Indication: GLUCOSE TOLERANCE IMPAIRED
     Dates: start: 20030204
  3. PLACEBO (PLACEBO) [Suspect]
  4. FAMOTIDINE [Concomitant]
  5. GERITOL (GERITOL) [Concomitant]
  6. ZOLOFT [Concomitant]

REACTIONS (11)
  - BLOOD UREA INCREASED [None]
  - CONCOMITANT DISEASE PROGRESSION [None]
  - DYSPNOEA EXERTIONAL [None]
  - ELECTROCARDIOGRAM ST SEGMENT ABNORMAL [None]
  - ELECTROCARDIOGRAM T WAVE ABNORMAL [None]
  - EXERCISE TOLERANCE DECREASED [None]
  - GASTROINTESTINAL HAEMORRHAGE [None]
  - HAEMATOCRIT DECREASED [None]
  - HAEMOGLOBIN DECREASED [None]
  - HEADACHE [None]
  - RED BLOOD CELL COUNT DECREASED [None]
